FAERS Safety Report 6527584-1 (Version None)
Quarter: 2010Q1

REPORT INFORMATION
  Report Type: 
  Country: None (occurrence: None)
  Receive Date: 20100105
  Receipt Date: 20091224
  Transmission Date: 20100710
  Serious: Yes (Other)
  Sender: FDA-Public Use
  Company Number: PHHY2009JP32059

PATIENT
  Age: 65 Year
  Sex: Male

DRUGS (1)
  1. AMN107 AMN+CAP [Suspect]
     Indication: CHRONIC MYELOID LEUKAEMIA
     Dosage: 800 MG DAILY
     Route: 048
     Dates: start: 20090526, end: 20090812

REACTIONS (2)
  - BLOOD BILIRUBIN UNCONJUGATED INCREASED [None]
  - ELECTROCARDIOGRAM QT PROLONGED [None]
